FAERS Safety Report 7413526-3 (Version None)
Quarter: 2011Q2

REPORT INFORMATION
  Report Type: 
  Country: None (occurrence: None)
  Receive Date: 20110413
  Receipt Date: 20110404
  Transmission Date: 20111010
  Serious: Yes (Death, Life-Threatening, Other)
  Sender: FDA-Public Use
  Company Number: TW-TEVA-274609ISR

PATIENT
  Age: 20 Year
  Sex: Female

DRUGS (5)
  1. VINORELBINE [Suspect]
     Indication: ACUTE LYMPHOCYTIC LEUKAEMIA
     Dosage: 20 MG/M2;
  2. TOPOTECAN [Suspect]
     Indication: ACUTE LYMPHOCYTIC LEUKAEMIA
     Dosage: 1 MG/M2;
  3. GEMCITABINE [Concomitant]
  4. DEXAMETHASONE [Concomitant]
  5. CISPLATIN [Suspect]
     Indication: ACUTE LYMPHOCYTIC LEUKAEMIA
     Dosage: 20 MG/M2;

REACTIONS (4)
  - HYPERAMMONAEMIA [None]
  - CONVULSION [None]
  - COMA [None]
  - RESPIRATORY ALKALOSIS [None]
